FAERS Safety Report 7822131-6 (Version None)
Quarter: 2011Q4

REPORT INFORMATION
  Report Type: 
  Country: None (occurrence: None)
  Receive Date: 20111018
  Receipt Date: 20110705
  Transmission Date: 20120403
  Serious: No
  Sender: FDA-Public Use
  Company Number: US-ASTRAZENECA-2011SE40344

PATIENT
  Age: 15 Year
  Sex: Female
  Weight: 45.8 kg

DRUGS (1)
  1. SYMBICORT [Suspect]
     Indication: ASTHMA
     Dosage: 160/4.5 MCG,  UNKNOWN FREQUENCY
     Route: 055
     Dates: start: 20110701

REACTIONS (2)
  - DEPRESSED MOOD [None]
  - AGITATION [None]
